FAERS Safety Report 17308835 (Version 2)
Quarter: 2022Q2

REPORT INFORMATION
  Report Type: Spontaneous
  Country: JP (occurrence: JP)
  Receive Date: 20200123
  Receipt Date: 20220616
  Transmission Date: 20220721
  Serious: Yes (Other)
  Sender: FDA-Public Use
  Company Number: JP-BRISTOL-MYERS SQUIBB COMPANY-BMS-2020-004620

PATIENT
  Age: 67 Year
  Sex: Female

DRUGS (8)
  1. EMPLICITI [Suspect]
     Active Substance: ELOTUZUMAB
     Indication: Plasma cell leukaemia
     Dates: start: 201712, end: 20180510
  2. EMPLICITI [Suspect]
     Active Substance: ELOTUZUMAB
     Indication: Plasma cell myeloma
     Dates: start: 201807, end: 201807
  3. EMPLICITI [Suspect]
     Active Substance: ELOTUZUMAB
     Dates: start: 201812
  4. REVLIMID [Suspect]
     Active Substance: LENALIDOMIDE
     Indication: Product used for unknown indication
     Dates: start: 201712, end: 20180510
  5. REVLIMID [Suspect]
     Active Substance: LENALIDOMIDE
     Dates: start: 201807, end: 201812
  6. LENADEX [Suspect]
     Active Substance: DEXAMETHASONE ACETATE
     Indication: Product used for unknown indication
     Dates: start: 201712, end: 20180510
  7. LENADEX [Suspect]
     Active Substance: DEXAMETHASONE ACETATE
     Dates: start: 201807, end: 201807
  8. LENADEX [Suspect]
     Active Substance: DEXAMETHASONE ACETATE
     Dates: start: 201812

REACTIONS (2)
  - Scapula fracture [Recovered/Resolved]
  - Joint dislocation [Recovered/Resolved]
